FAERS Safety Report 15802784 (Version 2)
Quarter: 2019Q1

REPORT INFORMATION
  Report Type: Spontaneous
  Country: US (occurrence: US)
  Receive Date: 20190109
  Receipt Date: 20190109
  Transmission Date: 20190417
  Serious: No
  Sender: FDA-Public Use
  Company Number: US-BAYER-2019-005174

PATIENT

DRUGS (1)
  1. GADAVIST [Suspect]
     Active Substance: GADOBUTROL
     Dosage: UNK

REACTIONS (1)
  - Incorrect route of product administration [None]
